FAERS Safety Report 6695302-2 (Version None)
Quarter: 2010Q2

REPORT INFORMATION
  Report Type: 
  Country: None (occurrence: None)
  Receive Date: 20100423
  Receipt Date: 20100423
  Transmission Date: 20101027
  Serious: Yes (Hospitalization)
  Sender: FDA-Public Use
  Company Number: JP-ABBOTT-09P-087-0601040-00

PATIENT
  Sex: Male
  Weight: 47.9 kg

DRUGS (14)
  1. HUMIRA [Suspect]
     Indication: RHEUMATOID ARTHRITIS
     Route: 058
     Dates: start: 20090903, end: 20090917
  2. HUMIRA [Suspect]
     Dates: start: 20091021, end: 20091216
  3. HUMIRA [Suspect]
     Dates: start: 20100113
  4. PREDNISOLONE [Suspect]
     Indication: RHEUMATOID ARTHRITIS
     Route: 048
     Dates: start: 20090605
  5. SALAZOSULFAPYRIDINE [Concomitant]
     Indication: RHEUMATOID ARTHRITIS
     Route: 048
     Dates: start: 20090121
  6. MITIGLINIDE CALCIUM HYDRATE [Concomitant]
     Indication: DIABETES PROPHYLAXIS
     Route: 048
     Dates: start: 20090525
  7. MIGLITOL [Concomitant]
     Indication: DIABETES PROPHYLAXIS
     Route: 048
     Dates: start: 20090605
  8. PIOGLITAZONE HYDROCHLORIDE [Concomitant]
     Indication: DIABETES PROPHYLAXIS
     Route: 048
     Dates: start: 20090126
  9. AMLODIPINE BESYLATE [Concomitant]
     Indication: PROPHYLAXIS
     Route: 048
     Dates: start: 20081204
  10. AMLODIPINE BESYLATE [Concomitant]
     Indication: HYPERTENSION
  11. RABEPRAZOLE SODIUM [Concomitant]
     Indication: PROPHYLAXIS AGAINST GASTROINTESTINAL ULCER
     Route: 048
     Dates: start: 20081204
  12. ALENDRONATE SODIUM [Concomitant]
     Indication: OSTEOPOROSIS
     Route: 048
     Dates: start: 20090817
  13. SULFAMETHOXAZOLE AND TRIMETHOPRIM [Concomitant]
     Indication: INFECTION PROPHYLAXIS
     Route: 048
     Dates: start: 20090525
  14. SODIUM RISEDRONATE HYDRATE [Concomitant]
     Indication: OSTEOPOROSIS
     Dates: start: 20090907

REACTIONS (7)
  - BACK PAIN [None]
  - C-REACTIVE PROTEIN INCREASED [None]
  - PAIN [None]
  - PLEURAL EFFUSION [None]
  - PNEUMONIA [None]
  - PYREXIA [None]
  - SPINAL COMPRESSION FRACTURE [None]
